FAERS Safety Report 5303948-9 (Version None)
Quarter: 2007Q1

REPORT INFORMATION
  Report Type: 
  Country: None (occurrence: None)
  Receive Date: 20070201
  Receipt Date: 20061120
  Transmission Date: 20070707
  Serious: No
  Sender: FDA-Public Use
  Company Number: 2006PV025633

PATIENT
  Age: 60 Year
  Sex: Female

DRUGS (10)
  1. BYETTA [Suspect]
     Indication: DIABETES MELLITUS NON-INSULIN-DEPENDENT
     Dosage: SEE IMAGE
     Route: 058
     Dates: start: 20050709, end: 20050801
  2. BYETTA [Suspect]
     Indication: DIABETES MELLITUS NON-INSULIN-DEPENDENT
     Dosage: SEE IMAGE
     Route: 058
     Dates: start: 20050801, end: 20051026
  3. ACTOS [Suspect]
     Dosage: 30 MG;PO
     Route: 048
     Dates: start: 20050709, end: 20060701
  4. NOVOLOG [Concomitant]
  5. ACTOS [Concomitant]
  6. GLIPIZIDE [Concomitant]
  7. NORVASC [Concomitant]
  8. TORSEMIDE [Concomitant]
  9. HYDROXYZINE HYDROCHLORIDE [Concomitant]
  10. PREVACID [Concomitant]

REACTIONS (5)
  - BLOOD GLUCOSE INCREASED [None]
  - CONDITION AGGRAVATED [None]
  - FLUID RETENTION [None]
  - HEART RATE INCREASED [None]
  - HYPERSENSITIVITY [None]
